FAERS Safety Report 10250484 (Version 1)
Quarter: 2014Q2

REPORT INFORMATION
  Report Type: Spontaneous
  Country: PL (occurrence: PL)
  Receive Date: 20140620
  Receipt Date: 20140620
  Transmission Date: 20141212
  Serious: Yes (Other)
  Sender: FDA-Public Use
  Company Number: PL-BAYER-2014-088397

PATIENT
  Age: 61 Year
  Sex: Male

DRUGS (3)
  1. ACETYLSALICYLIC ACID({=100 MG) [Suspect]
     Dosage: UNK
  2. ENOXAPARIN [Concomitant]
  3. STATIN [Concomitant]

REACTIONS (1)
  - Ischaemic stroke [None]
